FAERS Safety Report 6187133-7 (Version None)
Quarter: 2009Q2

REPORT INFORMATION
  Report Type: 
  Country: None (occurrence: None)
  Receive Date: 20090512
  Receipt Date: 20090505
  Transmission Date: 20091009
  Serious: Yes (Hospitalization)
  Sender: FDA-Public Use
  Company Number: US-ABBOTT-09P-163-0571706-00

PATIENT
  Sex: Female
  Weight: 50.394 kg

DRUGS (6)
  1. LUPRON DEPOT [Suspect]
     Indication: ENDOMETRIOSIS
     Route: 050
     Dates: start: 20080411, end: 20080610
  2. LUPRON DEPOT [Suspect]
     Dosage: ONE DOSE
     Route: 050
     Dates: start: 20080714, end: 20080714
  3. LOESTRIN 24 [Concomitant]
     Indication: UTERINE LEIOMYOMA
     Dosage: CONTINUOUSLY
     Route: 048
     Dates: start: 20081008, end: 20081230
  4. PROGESTIN INJ [Concomitant]
     Indication: HORMONE REPLACEMENT THERAPY
     Route: 048
     Dates: start: 20080731, end: 20081101
  5. PROGESTIN INJ [Concomitant]
     Route: 048
     Dates: start: 20081101, end: 20090401
  6. LOESTRIN 1.5/30 [Concomitant]
     Indication: UTERINE LEIOMYOMA
     Dosage: 1.5/30 MCG
     Dates: start: 20081231, end: 20090401

REACTIONS (4)
  - ANOREXIA [None]
  - CEREBROVASCULAR ACCIDENT [None]
  - DERMATITIS [None]
  - INSOMNIA [None]
